FAERS Safety Report 9085270 (Version 1)
Quarter: 2013Q1

REPORT INFORMATION
  Report Type: Spontaneous
  Country: AU (occurrence: AU)
  Receive Date: 20130218
  Receipt Date: 20130218
  Transmission Date: 20140127
  Serious: Yes (Other)
  Sender: FDA-Public Use
  Company Number: PHHY2008AU38238

PATIENT
  Sex: Female

DRUGS (3)
  1. GLIVEC [Suspect]
     Indication: CHRONIC MYELOID LEUKAEMIA
     Dosage: 600 MG, UNK
     Route: 048
     Dates: start: 20001001
  2. MACU-VISION [Concomitant]
     Dosage: UNK UKN, UNK
  3. FISH OIL [Concomitant]
     Dosage: UNK UKN, UNK

REACTIONS (7)
  - Coronary artery occlusion [Unknown]
  - Glucose tolerance impaired [Unknown]
  - Neuralgia [Unknown]
  - Diarrhoea [Unknown]
  - Lacrimation increased [Unknown]
  - Pain in extremity [Unknown]
  - Eye swelling [Unknown]
